FAERS Safety Report 20347609 (Version 1)
Quarter: 2022Q1

REPORT INFORMATION
  Report Type: Report from Study
  Country: US (occurrence: US)
  Receive Date: 20220118
  Receipt Date: 20220118
  Transmission Date: 20220423
  Serious: Yes (Other)
  Sender: FDA-Public Use
  Company Number: US-BAUSCH-BL-2021-019332

PATIENT
  Age: 66 Year
  Sex: Female
  Weight: 68.554 kg

DRUGS (10)
  1. XIFAXAN [Suspect]
     Active Substance: RIFAXIMIN
     Indication: Hepatic encephalopathy
     Route: 065
  2. PFIZER-BIONTECH COVID-19 VACCINE [Concomitant]
     Active Substance: TOZINAMERAN
     Indication: Prophylaxis
     Dosage: 100 MCG/0.5 ML
  3. PFIZER-BIONTECH COVID-19 VACCINE [Concomitant]
     Active Substance: TOZINAMERAN
     Dosage: 100 MCG/0.5 ML
     Dates: start: 202104
  4. LASIX [Concomitant]
     Active Substance: FUROSEMIDE
     Indication: Product used for unknown indication
  5. SPIRONOLACTONE [Concomitant]
     Active Substance: SPIRONOLACTONE
     Indication: Product used for unknown indication
     Route: 048
  6. LACTULOSE [Concomitant]
     Active Substance: LACTULOSE
     Indication: Product used for unknown indication
     Dosage: 10 GM/15 ML, 30 CC
  7. OMEPRAZOLE [Concomitant]
     Active Substance: OMEPRAZOLE
     Indication: Product used for unknown indication
  8. PRAMIPEXOLE [Concomitant]
     Active Substance: PRAMIPEXOLE
     Indication: Product used for unknown indication
     Route: 048
  9. TRAZODONE [Concomitant]
     Active Substance: TRAZODONE HYDROCHLORIDE
     Indication: Product used for unknown indication
     Dosage: QHS, AS NEEDED
     Route: 048
  10. MIRALAX [Concomitant]
     Active Substance: POLYETHYLENE GLYCOL 3350
     Indication: Product used for unknown indication

REACTIONS (7)
  - Hepatic encephalopathy [Unknown]
  - Disease recurrence [Unknown]
  - Amnesia [Unknown]
  - Depression [Unknown]
  - Dementia [Unknown]
  - Inability to afford medication [Unknown]
  - Therapy interrupted [Unknown]
